FAERS Safety Report 21261280 (Version 1)
Quarter: 2022Q3

REPORT INFORMATION
  Report Type: Spontaneous
  Country: US (occurrence: US)
  Receive Date: 20220826
  Receipt Date: 20220826
  Transmission Date: 20221027
  Serious: No
  Sender: FDA-Public Use
  Company Number: US-Dermavant-000122

PATIENT
  Sex: Male

DRUGS (1)
  1. TAPINAROF [Suspect]
     Active Substance: TAPINAROF
     Indication: Pruritus

REACTIONS (3)
  - Swelling [Unknown]
  - Inflammation [Unknown]
  - Off label use [Unknown]
